FAERS Safety Report 25375739 (Version 1)
Quarter: 2025Q2

REPORT INFORMATION
  Report Type: Spontaneous
  Country: US (occurrence: US)
  Receive Date: 20250529
  Receipt Date: 20250529
  Transmission Date: 20250717
  Serious: No
  Sender: SANOFI AVENTIS
  Company Number: US-SA-2025SA152411

PATIENT
  Age: 70 Year
  Sex: Male

DRUGS (1)
  1. DUPIXENT [Suspect]
     Active Substance: DUPILUMAB
     Indication: Nasal polyps
     Dosage: 300 MG, QOW
     Route: 058
     Dates: start: 202405

REACTIONS (5)
  - Muscle spasms [Unknown]
  - Hypoaesthesia [Unknown]
  - Condition aggravated [Unknown]
  - Pain in extremity [Unknown]
  - Condition aggravated [Unknown]

NARRATIVE: CASE EVENT DATE: 20250201
